FAERS Safety Report 24289838 (Version 1)
Quarter: 2024Q3

REPORT INFORMATION
  Report Type: Spontaneous
  Country: US (occurrence: US)
  Receive Date: 20240906
  Receipt Date: 20240906
  Transmission Date: 20241016
  Serious: No
  Sender: ELI LILLY AND CO
  Company Number: US-ELI_LILLY_AND_COMPANY-US202409002695

PATIENT
  Age: 34 Year
  Sex: Female

DRUGS (18)
  1. ZEPBOUND [Suspect]
     Active Substance: TIRZEPATIDE
     Indication: Insulin resistance
     Dosage: 2.5 MG, UNKNOWN
     Route: 058
     Dates: start: 202310
  2. ZEPBOUND [Suspect]
     Active Substance: TIRZEPATIDE
     Indication: Insulin resistance
     Dosage: 2.5 MG, UNKNOWN
     Route: 058
     Dates: start: 202310
  3. ZEPBOUND [Suspect]
     Active Substance: TIRZEPATIDE
     Indication: Insulin resistance
     Dosage: 2.5 MG, UNKNOWN
     Route: 058
     Dates: start: 202310
  4. ZEPBOUND [Suspect]
     Active Substance: TIRZEPATIDE
     Indication: Insulin resistance
     Dosage: 2.5 MG, UNKNOWN
     Route: 058
     Dates: start: 202310
  5. ZEPBOUND [Suspect]
     Active Substance: TIRZEPATIDE
     Indication: Cortisol increased
  6. ZEPBOUND [Suspect]
     Active Substance: TIRZEPATIDE
     Indication: Cortisol increased
  7. ZEPBOUND [Suspect]
     Active Substance: TIRZEPATIDE
     Indication: Cortisol increased
  8. ZEPBOUND [Suspect]
     Active Substance: TIRZEPATIDE
     Indication: Cortisol increased
  9. ZEPBOUND [Suspect]
     Active Substance: TIRZEPATIDE
     Indication: Insulin resistance
     Dosage: UNK UNK, UNKNOWN
     Route: 058
  10. ZEPBOUND [Suspect]
     Active Substance: TIRZEPATIDE
     Indication: Cortisol increased
  11. ZEPBOUND [Suspect]
     Active Substance: TIRZEPATIDE
     Indication: Insulin resistance
     Dosage: 10 MG, UNKNOWN
     Route: 058
  12. ZEPBOUND [Suspect]
     Active Substance: TIRZEPATIDE
     Indication: Insulin resistance
     Dosage: 10 MG, UNKNOWN
     Route: 058
  13. ZEPBOUND [Suspect]
     Active Substance: TIRZEPATIDE
     Indication: Insulin resistance
     Dosage: 10 MG, UNKNOWN
     Route: 058
  14. ZEPBOUND [Suspect]
     Active Substance: TIRZEPATIDE
     Indication: Insulin resistance
     Dosage: 10 MG, UNKNOWN
     Route: 058
  15. ZEPBOUND [Suspect]
     Active Substance: TIRZEPATIDE
     Indication: Cortisol increased
  16. ZEPBOUND [Suspect]
     Active Substance: TIRZEPATIDE
     Indication: Cortisol increased
  17. ZEPBOUND [Suspect]
     Active Substance: TIRZEPATIDE
     Indication: Cortisol increased
  18. ZEPBOUND [Suspect]
     Active Substance: TIRZEPATIDE
     Indication: Cortisol increased

REACTIONS (2)
  - Off label use [Unknown]
  - Alopecia [Not Recovered/Not Resolved]

NARRATIVE: CASE EVENT DATE: 20231001
